FAERS Safety Report 5104572-3 (Version None)
Quarter: 2006Q3

REPORT INFORMATION
  Report Type: 
  Country: None (occurrence: None)
  Receive Date: 20060908
  Receipt Date: 20060908
  Transmission Date: 20061208
  Serious: No
  Sender: FDA-Public Use
  Company Number: None

PATIENT
  Sex: Male
  Weight: 115.6672 kg

DRUGS (11)
  1. LOVASTATIN [Suspect]
     Indication: BLOOD CHOLESTEROL INCREASED
     Dosage: 80 MG ONCE DAILY PO
     Route: 048
     Dates: start: 20050922, end: 20060523
  2. ALBUTEROL SULFATE AND IPRATROPIUM BROMIDE [Concomitant]
  3. ALBUTEROL [Concomitant]
  4. ASPIRIN [Concomitant]
  5. ATENOLOL [Concomitant]
  6. FLUNISOLIDE [Concomitant]
  7. HYDROCODONE 5/ACETAMINOPHEN [Concomitant]
  8. LISINOPRIL [Concomitant]
  9. NIACIN-NIASPAN-KOS [Concomitant]
  10. SILDENAFIL CITRATE [Concomitant]
  11. COUMADIN [Concomitant]

REACTIONS (1)
  - VISION BLURRED [None]
